FAERS Safety Report 25141652 (Version 1)
Quarter: 2025Q1

REPORT INFORMATION
  Report Type: Spontaneous
  Country: US (occurrence: None)
  Receive Date: 20250328
  Receipt Date: 20250328
  Transmission Date: 20250409
  Serious: Yes (Other)
  Sender: FDA-CTU
  Company Number: None

PATIENT
  Sex: Male

DRUGS (1)
  1. TAFAMIDIS [Suspect]
     Active Substance: TAFAMIDIS
     Dates: start: 202503, end: 20250328

REACTIONS (2)
  - Diarrhoea [None]
  - Disorientation [None]

NARRATIVE: CASE EVENT DATE: 20250312
